FAERS Safety Report 11413254 (Version 1)
Quarter: 2015Q3

REPORT INFORMATION
  Report Type: Spontaneous
  Country: US (occurrence: US)
  Receive Date: 20150821
  Receipt Date: 20150821
  Transmission Date: 20151125
  Serious: No
  Sender: FDA-Public Use
  Company Number: US-ELI_LILLY_AND_COMPANY-US201209003984

PATIENT
  Sex: Male

DRUGS (4)
  1. HUMULIN N [Suspect]
     Active Substance: INSULIN HUMAN
     Indication: DIABETES MELLITUS
     Dosage: 32 IU, QD
  2. HUMULIN N [Suspect]
     Active Substance: INSULIN HUMAN
     Dosage: 32 IU, QD
  3. HUMULIN N [Suspect]
     Active Substance: INSULIN HUMAN
     Dosage: 32 IU, QD
  4. HUMULIN N [Suspect]
     Active Substance: INSULIN HUMAN
     Dosage: 32 IU, QD
     Dates: start: 201209

REACTIONS (1)
  - Dementia [Not Recovered/Not Resolved]
